FAERS Safety Report 5179384-5 (Version None)
Quarter: 2006Q4

REPORT INFORMATION
  Report Type: 
  Country: None (occurrence: None)
  Receive Date: 20061219
  Receipt Date: 20061129
  Transmission Date: 20070319
  Serious: Yes (Hospitalization)
  Sender: FDA-Public Use
  Company Number: TH-GILEAD-2006-0010749

PATIENT
  Age: 27 Year
  Sex: Female
  Weight: 41 kg

DRUGS (2)
  1. EMTRICITABINE/TENOFOVIR DISOPROXIL FUMARATE [Suspect]
     Indication: HIV INFECTION
     Route: 048
     Dates: start: 20060920, end: 20061119
  2. EFAVIRENZ [Suspect]
     Indication: HIV INFECTION
     Route: 048
     Dates: start: 20060920, end: 20061119

REACTIONS (13)
  - BLOOD CALCIUM DECREASED [None]
  - DIARRHOEA [None]
  - DRUG TOXICITY [None]
  - EOSINOPHIL PERCENTAGE INCREASED [None]
  - FATIGUE [None]
  - HEPATITIS [None]
  - HYPOKALAEMIA [None]
  - METABOLIC ACIDOSIS [None]
  - MUSCLE SPASMS [None]
  - MYOPATHY [None]
  - OEDEMA PERIPHERAL [None]
  - PLATELET COUNT INCREASED [None]
  - VOMITING [None]
